FAERS Safety Report 7637427-0 (Version None)
Quarter: 2011Q3

REPORT INFORMATION
  Report Type: 
  Country: None (occurrence: None)
  Receive Date: 20110726
  Receipt Date: 20110722
  Transmission Date: 20111222
  Serious: No
  Sender: FDA-Public Use
  Company Number: US-PFIZER INC-2011167341

PATIENT
  Sex: Male
  Weight: 89.34 kg

DRUGS (3)
  1. LIPITOR [Suspect]
     Indication: BLOOD CHOLESTEROL INCREASED
     Dosage: 40 MG, 1X/DAY
     Route: 048
     Dates: start: 20070101, end: 20110101
  2. NEXIUM [Concomitant]
     Dosage: UNK
  3. CRESTOR [Suspect]
     Indication: BLOOD CHOLESTEROL INCREASED
     Dosage: 5 MG, 1X/DAY
     Dates: start: 20110701, end: 20110701

REACTIONS (4)
  - MALAISE [None]
  - ALOPECIA [None]
  - HEADACHE [None]
  - DRUG INEFFECTIVE [None]
